FAERS Safety Report 19041338 (Version 2)
Quarter: 2021Q2

REPORT INFORMATION
  Report Type: Spontaneous
  Country: CA (occurrence: CA)
  Receive Date: 20210323
  Receipt Date: 20210521
  Transmission Date: 20210717
  Serious: Yes (Other)
  Sender: FDA-Public Use
  Company Number: CA-ORION CORPORATION ORION PHARMA-TREX2020-0914

PATIENT
  Age: 62 Year
  Sex: Female

DRUGS (15)
  1. LEUCOVORIN CALCIUM. [Concomitant]
     Active Substance: LEUCOVORIN CALCIUM
     Route: 048
     Dates: end: 2016
  2. METHOTREXATE (TRADE NAME UNKNOWN) [Suspect]
     Active Substance: METHOTREXATE
     Indication: RHEUMATOID ARTHRITIS
     Route: 048
  3. CELEBREX [Concomitant]
     Active Substance: CELECOXIB
     Route: 048
     Dates: start: 2014
  4. OMEPRAZOLE. [Concomitant]
     Active Substance: OMEPRAZOLE
     Indication: ABDOMINAL DISCOMFORT
     Route: 048
  5. METHOTREXATE (TRADE NAME UNKNOWN) [Suspect]
     Active Substance: METHOTREXATE
     Route: 065
  6. APO?PREDNISONE [Concomitant]
     Active Substance: PREDNISONE
     Route: 048
  7. VOLTAREN [Concomitant]
     Active Substance: DICLOFENAC SODIUM
     Route: 061
  8. PLAQUENIL S [Concomitant]
     Active Substance: HYDROXYCHLOROQUINE SULFATE
     Route: 065
  9. METHOTREXATE (TRADE NAME UNKNOWN) [Suspect]
     Active Substance: METHOTREXATE
     Dosage: TWICE WEEKLY (WEDNESDAY PM, THURSDAY AM)
     Route: 048
     Dates: start: 201812, end: 201903
  10. HYDROXYCHLOROQUINE [Concomitant]
     Active Substance: HYDROXYCHLOROQUINE
     Route: 065
     Dates: start: 2013
  11. CELEBREX [Concomitant]
     Active Substance: CELECOXIB
     Route: 048
     Dates: start: 2014
  12. APO MELOXICAM [Concomitant]
     Active Substance: MELOXICAM
     Route: 048
     Dates: start: 2016
  13. APO HYDROXYQUINE [Concomitant]
     Active Substance: HYDROXYCHLOROQUINE SULFATE
     Route: 048
     Dates: start: 2016
  14. CI?CAL [Concomitant]
     Route: 048
  15. APO?PREDNISONE [Concomitant]
     Active Substance: PREDNISONE
     Dosage: LOW DOSE
     Route: 065

REACTIONS (9)
  - Arthritis [Unknown]
  - Drug intolerance [Unknown]
  - Nodule [Unknown]
  - Rheumatoid arthritis [Unknown]
  - Product use issue [Unknown]
  - Lymphadenopathy [Unknown]
  - Benign neoplasm [Unknown]
  - Mass [Unknown]
  - Fatigue [Unknown]
